FAERS Safety Report 4587734-3 (Version None)
Quarter: 2005Q1

REPORT INFORMATION
  Report Type: 
  Country: None (occurrence: None)
  Receive Date: 20050218
  Receipt Date: 20050210
  Transmission Date: 20050727
  Serious: Yes (Hospitalization)
  Sender: FDA-Public Use
  Company Number: SE-MERCK-0502SWE00013

PATIENT
  Age: 71 Year
  Sex: Female

DRUGS (2)
  1. VIOXX [Suspect]
     Indication: OSTEOARTHRITIS
     Route: 065
     Dates: start: 20001001, end: 20040701
  2. CARVEDILOL [Concomitant]
     Route: 065

REACTIONS (3)
  - AORTIC STENOSIS [None]
  - CARDIAC FAILURE [None]
  - MYOCARDIAL INFARCTION [None]
